FAERS Safety Report 4408216-5 (Version None)
Quarter: 2004Q3

REPORT INFORMATION
  Report Type: 
  Country: None (occurrence: None)
  Receive Date: 20040726
  Receipt Date: 20040726
  Transmission Date: 20050211
  Serious: Yes (Other)
  Sender: FDA-Public Use
  Company Number: None

PATIENT
  Age: 43 Year
  Sex: Female
  Weight: 53.5244 kg

DRUGS (12)
  1. VENOGLOBULIN-S [Suspect]
     Indication: LOWER MOTOR NEURONE LESION
     Dosage: 20 GM/200 Q 24 HRS X INTRAVENOUS
     Route: 042
     Dates: start: 20040720, end: 20040721
  2. AMBIEN [Concomitant]
  3. DEPAKOTE [Concomitant]
  4. CLONAZEPAM [Concomitant]
  5. PRILOSEC [Concomitant]
  6. PREMARIN [Concomitant]
  7. DOXASOSIN [Concomitant]
  8. DITROPAN XL [Concomitant]
  9. CELEBREX [Concomitant]
  10. CYPROHEPTADINE HCL [Concomitant]
  11. IMITREX [Concomitant]
  12. METOCLOPRAMIDE [Concomitant]

REACTIONS (2)
  - MENINGITIS ASEPTIC [None]
  - VISUAL DISTURBANCE [None]
